FAERS Safety Report 8336619-5 (Version None)
Quarter: 2012Q2

REPORT INFORMATION
  Report Type: 
  Country: None (occurrence: None)
  Receive Date: 20120501
  Receipt Date: 20120423
  Transmission Date: 20120825
  Serious: Yes (Hospitalization)
  Sender: FDA-Public Use
  Company Number: DSA_44551_2010

PATIENT
  Sex: Male
  Weight: 147.419 kg

DRUGS (31)
  1. HYZAAR [Concomitant]
  2. SYNTHROID [Concomitant]
  3. XENAZINE [Suspect]
     Indication: TARDIVE DYSKINESIA
     Dosage: SEE IMAGE
     Route: 048
     Dates: start: 20100101
  4. XENAZINE [Suspect]
     Indication: DYSKINESIA
     Dosage: SEE IMAGE
     Route: 048
     Dates: start: 20100101
  5. XENAZINE [Suspect]
     Indication: TARDIVE DYSKINESIA
     Dosage: SEE IMAGE
     Route: 048
     Dates: start: 20100101, end: 20100101
  6. XENAZINE [Suspect]
     Indication: DYSKINESIA
     Dosage: SEE IMAGE
     Route: 048
     Dates: start: 20100101, end: 20100101
  7. XENAZINE [Suspect]
     Indication: TARDIVE DYSKINESIA
     Dosage: SEE IMAGE
     Route: 048
     Dates: start: 20101101
  8. XENAZINE [Suspect]
     Indication: DYSKINESIA
     Dosage: SEE IMAGE
     Route: 048
     Dates: start: 20101101
  9. XENAZINE [Suspect]
     Indication: TARDIVE DYSKINESIA
     Dosage: SEE IMAGE
     Route: 048
     Dates: start: 20120101
  10. XENAZINE [Suspect]
     Indication: DYSKINESIA
     Dosage: SEE IMAGE
     Route: 048
     Dates: start: 20120101
  11. XENAZINE [Suspect]
     Indication: TARDIVE DYSKINESIA
     Dosage: SEE IMAGE
     Route: 048
     Dates: start: 20101103, end: 20100101
  12. XENAZINE [Suspect]
     Indication: DYSKINESIA
     Dosage: SEE IMAGE
     Route: 048
     Dates: start: 20101103, end: 20100101
  13. XENAZINE [Suspect]
     Indication: TARDIVE DYSKINESIA
     Dosage: SEE IMAGE
     Route: 048
     Dates: start: 20110516
  14. XENAZINE [Suspect]
     Indication: DYSKINESIA
     Dosage: SEE IMAGE
     Route: 048
     Dates: start: 20110516
  15. XENAZINE [Suspect]
     Indication: TARDIVE DYSKINESIA
     Dosage: SEE IMAGE
     Route: 048
     Dates: start: 20120117
  16. XENAZINE [Suspect]
     Indication: DYSKINESIA
     Dosage: SEE IMAGE
     Route: 048
     Dates: start: 20120117
  17. XENAZINE [Suspect]
     Indication: TARDIVE DYSKINESIA
     Dosage: SEE IMAGE
     Route: 048
  18. XENAZINE [Suspect]
     Indication: DYSKINESIA
     Dosage: SEE IMAGE
     Route: 048
  19. ASACOL [Concomitant]
  20. XENAZINE [Suspect]
  21. HUMULIN R [Concomitant]
  22. LOSARTAN POTASSIUM [Concomitant]
  23. METFORMIN [Concomitant]
  24. QUESTRAN [Concomitant]
  25. TRAMADOL HYDROCHLORIDE [Concomitant]
  26. NEXIUM /01479303/ [Concomitant]
  27. ROZEREM [Concomitant]
  28. AMBIEN [Concomitant]
  29. VITAMIN B COMPLEX CAP [Concomitant]
  30. IMODIUM [Concomitant]
  31. VITAMIN D [Concomitant]

REACTIONS (14)
  - HYPERHIDROSIS [None]
  - MUSCULAR WEAKNESS [None]
  - VOMITING [None]
  - NAUSEA [None]
  - MOVEMENT DISORDER [None]
  - FATIGUE [None]
  - DIARRHOEA [None]
  - SKIN ODOUR ABNORMAL [None]
  - DYSSTASIA [None]
  - ERUCTATION [None]
  - MUSCULOSKELETAL STIFFNESS [None]
  - DIZZINESS [None]
  - ELECTROCARDIOGRAM QT PROLONGED [None]
  - DYSPNOEA [None]
